FAERS Safety Report 6640461-0 (Version None)
Quarter: 2010Q1

REPORT INFORMATION
  Report Type: 
  Country: None (occurrence: None)
  Receive Date: 20100318
  Receipt Date: 20100309
  Transmission Date: 20100710
  Serious: Yes (Other)
  Sender: FDA-Public Use
  Company Number: US-PFIZER INC-2010030660

PATIENT
  Sex: Female
  Weight: 61.224 kg

DRUGS (2)
  1. AROMASIN [Suspect]
     Dosage: 25 MG, THREE TIMES A WEEK
     Route: 048
     Dates: start: 20100101, end: 20100308
  2. AMBIEN [Concomitant]
     Indication: SLEEP DISORDER
     Dosage: 5 MG, 1X/DAY
     Route: 048

REACTIONS (1)
  - EYE PAIN [None]
